FAERS Safety Report 16381812 (Version 1)
Quarter: 2019Q2

REPORT INFORMATION
  Report Type: Spontaneous
  Country: US (occurrence: US)
  Receive Date: 20190603
  Receipt Date: 20190603
  Transmission Date: 20190711
  Serious: No
  Sender: FDA-Public Use
  Company Number: US-BIO PRODUCTS LABORATORY LTD-2067700

PATIENT
  Age: 19 Year
  Sex: Male

DRUGS (3)
  1. GENERIC IVIG [Suspect]
     Active Substance: HUMAN IMMUNOGLOBULIN G
     Indication: LIMBIC ENCEPHALITIS
     Route: 042
  2. ALPRAZOLAMPINES [Concomitant]
  3. BENZODIAZE [Concomitant]

REACTIONS (1)
  - Off label use [Unknown]
